FAERS Safety Report 6646966-0 (Version None)
Quarter: 2010Q1

REPORT INFORMATION
  Report Type: 
  Country: None (occurrence: None)
  Receive Date: 20100323
  Receipt Date: 20100311
  Transmission Date: 20100710
  Serious: Yes (Hospitalization)
  Sender: FDA-Public Use
  Company Number: DK-PFIZER INC-2010014088

PATIENT
  Age: 57 Year
  Sex: Male
  Weight: 90 kg

DRUGS (7)
  1. SALAZOPYRIN [Suspect]
     Indication: PALINDROMIC RHEUMATISM
     Dosage: 500 MG, 2X/DAY
     Route: 048
     Dates: start: 20091118, end: 20100105
  2. PREDNISOLON [Concomitant]
     Indication: PALINDROMIC RHEUMATISM
     Dosage: UNK
     Route: 048
     Dates: start: 20091105, end: 20100104
  3. SELO-ZOK [Concomitant]
     Indication: HYPERTENSION
     Dosage: UNK
     Route: 048
     Dates: start: 20070322
  4. ACETYLSALICYLIC ACID [Concomitant]
     Indication: ANTICOAGULANT THERAPY
     Dosage: UNK
     Route: 048
     Dates: start: 20091102
  5. CALCIUM [Concomitant]
     Indication: MINERAL SUPPLEMENTATION
     Dosage: UNK
     Dates: start: 20091105
  6. CENTYL [Concomitant]
     Indication: HYPERTENSION
     Dosage: UNK
     Route: 048
     Dates: start: 20091106, end: 20100102
  7. IBUMETIN [Concomitant]
     Indication: PALINDROMIC RHEUMATISM
     Dosage: UNK

REACTIONS (3)
  - AGRANULOCYTOSIS [None]
  - C-REACTIVE PROTEIN INCREASED [None]
  - PYREXIA [None]
